FAERS Safety Report 23820693 (Version 1)
Quarter: 2024Q2

REPORT INFORMATION
  Report Type: Spontaneous
  Country: US (occurrence: None)
  Receive Date: 20240503
  Receipt Date: 20240503
  Transmission Date: 20240716
  Serious: Yes (Disabling, Other)
  Sender: FDA-Public Use
  Company Number: None

PATIENT
  Age: 64 Year
  Sex: Male
  Weight: 85.5 kg

DRUGS (14)
  1. AJOVY [Suspect]
     Active Substance: FREMANEZUMAB-VFRM
     Indication: Migraine
     Dosage: 1 INJECTION MONTHLY SUBCUTANEOUS ?
     Route: 058
     Dates: start: 20240306, end: 20240418
  2. PROPRANOLOL [Concomitant]
     Active Substance: PROPRANOLOL HYDROCHLORIDE
  3. LISINOPRIL [Concomitant]
     Active Substance: LISINOPRIL
  4. ATORVASTATIN [Concomitant]
     Active Substance: ATORVASTATIN
  5. SUMATRIPTAN [Concomitant]
     Active Substance: SUMATRIPTAN
  6. Butal-acetaminophen-caff-50 [Concomitant]
  7. Butalb-comp-codeine [Concomitant]
  8. Morphine Sul ER [Concomitant]
  9. ONDANSETRON [Concomitant]
     Active Substance: ONDANSETRON
  10. SILDENAFIL [Concomitant]
     Active Substance: SILDENAFIL
  11. VITAMINS [Concomitant]
     Active Substance: VITAMINS
  12. VIT C [Concomitant]
  13. ADVIL [Concomitant]
     Active Substance: IBUPROFEN
  14. TUMS [Concomitant]
     Active Substance: CALCIUM CARBONATE

REACTIONS (5)
  - Anxiety [None]
  - Panic attack [None]
  - Chest pain [None]
  - Hypertension [None]
  - Post-traumatic stress disorder [None]

NARRATIVE: CASE EVENT DATE: 20240415
